FAERS Safety Report 18527359 (Version 4)
Quarter: 2021Q1

REPORT INFORMATION
  Report Type: Spontaneous
  Country: US (occurrence: US)
  Receive Date: 20201120
  Receipt Date: 20210307
  Transmission Date: 20210419
  Serious: No
  Sender: FDA-Public Use
  Company Number: US-LUPIN PHARMACEUTICALS INC.-2020-08713

PATIENT
  Age: 84 Year
  Sex: Male
  Weight: 81.63 kg

DRUGS (2)
  1. ALBUTEROL SULFATE INHALATION AEROSOL, 90 MCG/ACTUATION [Suspect]
     Active Substance: ALBUTEROL SULFATE
     Indication: ASTHMA
     Dosage: UNK UNK, PRN (1 OR 2 PUFFS AS NEEDED)
     Dates: start: 20201029
  2. ALBUTEROL SULFATE INHALATION AEROSOL, 90 MCG/ACTUATION [Suspect]
     Active Substance: ALBUTEROL SULFATE
     Indication: CHRONIC OBSTRUCTIVE PULMONARY DISEASE

REACTIONS (5)
  - No adverse event [Unknown]
  - Product packaging issue [Unknown]
  - Drug dose omission by device [Unknown]
  - Device delivery system issue [Unknown]
  - Device malfunction [Unknown]

NARRATIVE: CASE EVENT DATE: 20201029
